FAERS Safety Report 8284784-0 (Version None)
Quarter: 2012Q2

REPORT INFORMATION
  Report Type: 
  Country: None (occurrence: None)
  Receive Date: 20120413
  Receipt Date: 20110719
  Transmission Date: 20120825
  Serious: No
  Sender: FDA-Public Use
  Company Number: US-ASTRAZENECA-2011SE36408

PATIENT
  Age: 83 Year
  Sex: Female

DRUGS (2)
  1. NEXIUM [Suspect]
     Route: 048
  2. OMEPRAZOLE [Suspect]
     Route: 048
     Dates: start: 20110112

REACTIONS (4)
  - ADVERSE DRUG REACTION [None]
  - CROHN'S DISEASE [None]
  - MALAISE [None]
  - ERUCTATION [None]
